FAERS Safety Report 4965147-X (Version None)
Quarter: 2006Q1

REPORT INFORMATION
  Report Type: 
  Country: None (occurrence: None)
  Receive Date: 20060201
  Receipt Date: 20051012
  Transmission Date: 20060701
  Serious: No
  Sender: FDA-Public Use
  Company Number: 2005PV003071

PATIENT
  Age: 64 Year
  Sex: Male
  Weight: 98.4306 kg

DRUGS (19)
  1. BYETTA [Suspect]
     Indication: DIABETES MELLITUS NON-INSULIN-DEPENDENT
     Dosage: SEE IMAGE
     Route: 058
     Dates: start: 20050901, end: 20051001
  2. BYETTA [Suspect]
     Indication: DIABETES MELLITUS NON-INSULIN-DEPENDENT
     Dosage: SEE IMAGE
     Route: 058
     Dates: start: 20051007
  3. AVANDIA [Concomitant]
  4. GLUCOPHAGE [Concomitant]
  5. COUMADIN [Concomitant]
  6. LIPITOR [Concomitant]
  7. MOBIC [Concomitant]
  8. ALPRAZOLAM [Concomitant]
  9. LEVODOPA [Concomitant]
  10. DIGITEK [Concomitant]
  11. DILTIAZEM HCL [Concomitant]
  12. GABAPENTIN [Concomitant]
  13. DURAGESIC-100 [Concomitant]
  14. LEXAPRO [Concomitant]
  15. LISINOPRIL [Concomitant]
  16. NISTROSTAT [Concomitant]
  17. VITAMIN B-12 [Concomitant]
  18. MAG-OX [Concomitant]
  19. CARBIDOPA [Concomitant]

REACTIONS (4)
  - BLOOD GLUCOSE INCREASED [None]
  - DECREASED APPETITE [None]
  - NAUSEA [None]
  - WEIGHT DECREASED [None]
